FAERS Safety Report 8179171-X (Version None)
Quarter: 2012Q1

REPORT INFORMATION
  Report Type: 
  Country: None (occurrence: None)
  Receive Date: 20120227
  Receipt Date: 20120213
  Transmission Date: 20120608
  Serious: Yes (Other)
  Sender: FDA-Public Use
  Company Number: 1000026666

PATIENT
  Age: 52 Year
  Sex: Female
  Weight: 72 kg

DRUGS (5)
  1. MARTEFARIN (WARFARIN SODIUM) [Concomitant]
  2. TRANDOLAPRIL [Concomitant]
  3. ESCITALOPRAM OXALATE [Suspect]
     Indication: ANXIETY
     Dosage: 10 MG (10 MG, 1 IN 1 D), ORAL
     Route: 048
     Dates: start: 20111003, end: 20111110
  4. SANVAL (ZOLPIDEM TARTRATE) [Concomitant]
  5. DIAZEPAM [Concomitant]

REACTIONS (4)
  - ANGINA PECTORIS [None]
  - DRUG INEFFECTIVE [None]
  - ELECTROCARDIOGRAM ST SEGMENT ABNORMAL [None]
  - BLOOD CHOLESTEROL INCREASED [None]
